FAERS Safety Report 7950821-3 (Version None)
Quarter: 2011Q4

REPORT INFORMATION
  Report Type: 
  Country: None (occurrence: None)
  Receive Date: 20111201
  Receipt Date: 20111128
  Transmission Date: 20120403
  Serious: No
  Sender: FDA-Public Use
  Company Number: US-PFIZER INC-2011290197

PATIENT
  Sex: Female
  Weight: 63.492 kg

DRUGS (1)
  1. ADVIL LIQUI-GELS [Suspect]
     Indication: HEADACHE
     Dosage: 400 MG, 1X/DAY
     Route: 048
     Dates: start: 20111127, end: 20111127

REACTIONS (6)
  - HAEMOPTYSIS [None]
  - CHEST PAIN [None]
  - WHEEZING [None]
  - MALAISE [None]
  - ABDOMINAL DISCOMFORT [None]
  - EXPIRED DRUG ADMINISTERED [None]
